FAERS Safety Report 9410067 (Version 1)
Quarter: 2013Q3

REPORT INFORMATION
  Report Type: Report from Study
  Country: US (occurrence: US)
  Receive Date: 20130719
  Receipt Date: 20130719
  Transmission Date: 20140515
  Serious: Yes (Other)
  Sender: FDA-Public Use
  Company Number: US-JNJFOC-20130709017

PATIENT
  Age: 16 Year
  Sex: Female
  Weight: 65.8 kg

DRUGS (18)
  1. REMICADE [Suspect]
     Indication: INFLAMMATORY BOWEL DISEASE
     Route: 042
     Dates: start: 20071114
  2. METHOTREXATE [Concomitant]
     Route: 065
  3. CLOBETASOL [Concomitant]
     Route: 065
  4. FERROUS SULFATE [Concomitant]
     Route: 065
  5. BACTROBAN [Concomitant]
     Route: 065
  6. FOLIC ACID [Concomitant]
     Route: 065
  7. FERROUS SULFATE [Concomitant]
     Route: 065
  8. BACTROBAN [Concomitant]
     Route: 045
  9. AMITRIPTYLINE [Concomitant]
     Route: 065
  10. VITAMIN D [Concomitant]
     Route: 065
  11. FLORASTOR [Concomitant]
     Route: 065
  12. ALBUTEROL [Concomitant]
     Route: 055
  13. SINGULAIR [Concomitant]
     Route: 065
  14. MULTIVITAMINS [Concomitant]
     Route: 065
  15. FISH OIL [Concomitant]
     Route: 065
  16. PROTONIX [Concomitant]
     Route: 065
  17. 5-ASA [Concomitant]
     Route: 048
  18. ANTIBIOTICS FOR IBD [Concomitant]
     Route: 065

REACTIONS (1)
  - Subcutaneous abscess [Recovered/Resolved]
